FAERS Safety Report 9295180 (Version 1)
Quarter: 2013Q2

REPORT INFORMATION
  Report Type: Spontaneous
  Country: US (occurrence: None)
  Receive Date: 20130516
  Receipt Date: 20130516
  Transmission Date: 20140414
  Serious: Yes (Hospitalization)
  Sender: FDA-Public Use
  Company Number: None

PATIENT
  Age: 63 Year
  Sex: Male
  Weight: 76 kg

DRUGS (6)
  1. CLOPIDOGREL [Suspect]
     Indication: CEREBROVASCULAR ACCIDENT PROPHYLAXIS
     Dosage: PRIOR TO ADMISSION
     Route: 048
  2. FISH OIL CAPSULES [Concomitant]
  3. CHOLECALCIFEROL [Concomitant]
  4. MULTIVITAMIN [Concomitant]
  5. CALCIUM CARBONATE CHEW [Concomitant]
  6. AMLODIPINE/B [Concomitant]

REACTIONS (6)
  - Fall [None]
  - Subdural haematoma [None]
  - Drug dose omission [None]
  - Hypoaesthesia [None]
  - Head injury [None]
  - Cerebrovascular accident [None]
